FAERS Safety Report 5046551-0 (Version None)
Quarter: 2006Q3

REPORT INFORMATION
  Report Type: 
  Country: None (occurrence: None)
  Receive Date: 20060705
  Receipt Date: 20060705
  Transmission Date: 20061208
  Serious: Yes (Disabling)
  Sender: FDA-Public Use
  Company Number: None

PATIENT
  Age: 40 Year
  Sex: Female
  Weight: 91.6266 kg

DRUGS (2)
  1. GADOLINIUM CONTRAST AGENT [Suspect]
  2. BLOOD PRESSURE MEDICINE [Concomitant]

REACTIONS (7)
  - ARTHRALGIA [None]
  - ARTHROPATHY [None]
  - ASTHENIA [None]
  - ILL-DEFINED DISORDER [None]
  - MUSCLE CONTRACTIONS INVOLUNTARY [None]
  - SKIN TIGHTNESS [None]
  - WHEELCHAIR USER [None]
